FAERS Safety Report 11725680 (Version 1)
Quarter: 2015Q4

REPORT INFORMATION
  Report Type: Spontaneous
  Country: US (occurrence: US)
  Receive Date: 20151111
  Receipt Date: 20151111
  Transmission Date: 20160304
  Serious: Yes (Other)
  Sender: FDA-Public Use
  Company Number: US-UCBSA-2015027137

PATIENT
  Age: 9 Year
  Sex: Male
  Weight: 16.8 kg

DRUGS (2)
  1. VITAMIN D3 [Interacting]
     Active Substance: CHOLECALCIFEROL
     Indication: NUTRITIONAL SUPPLEMENTATION
     Dosage: 1 DF, ONE TIME DOSE; 1 DF, ONCE DAILY (QD); 1 SOFTGEL, ONCE ORALLY (STRENGHT: 2000 IU SOFTGELS)
     Route: 048
     Dates: start: 20150727, end: 20150727
  2. VIMPAT [Suspect]
     Active Substance: LACOSAMIDE
     Indication: SEIZURE
     Dosage: ONCE DAILY (QD); (STRENGTH: 10 MG/ML)

REACTIONS (2)
  - Seizure [Recovered/Resolved]
  - Drug interaction [Recovered/Resolved]

NARRATIVE: CASE EVENT DATE: 20150728
